FAERS Safety Report 7476931-5 (Version None)
Quarter: 2011Q2

REPORT INFORMATION
  Report Type: 
  Country: None (occurrence: None)
  Receive Date: 20110512
  Receipt Date: 20090716
  Transmission Date: 20111010
  Serious: Yes (Other)
  Sender: FDA-Public Use
  Company Number: US-BAYER-200926303NA

PATIENT
  Age: 67 Year
  Sex: Female
  Weight: 113.38 kg

DRUGS (19)
  1. AMIODARONE HCL [Concomitant]
     Dosage: UNK
     Route: 042
     Dates: start: 20060331
  2. HEPARIN [Concomitant]
     Dosage: UNK
     Route: 042
     Dates: start: 20060331
  3. DESYREL [Concomitant]
     Dosage: 150 MG AT BED TIME
     Route: 048
  4. DIOVAN [Concomitant]
     Dosage: 320 MG, QD
     Route: 048
  5. LASIX [Concomitant]
     Dosage: 40 MG, QD
     Route: 048
  6. TRASYLOL [Suspect]
     Indication: AORTIC VALVE REPLACEMENT
     Dosage: 2 X 10(6) KI UNITS LOADING DOSE
     Route: 042
     Dates: start: 20060331, end: 20060331
  7. TRASYLOL [Suspect]
     Indication: CORONARY ARTERY BYPASS
     Dosage: 1 ML, INITIAL TEST DOSE
     Route: 042
     Dates: start: 20060331, end: 20060331
  8. NORVASC [Concomitant]
     Dosage: 10 MG 1 EVERY MORNING, ? EVERY NIGHT
     Route: 048
  9. TOPROL-XL [Concomitant]
     Dosage: 50 MG, BID
     Route: 048
  10. ACETYLSALICYLIC ACID SRT [Concomitant]
     Dosage: 81 MG, QD
  11. TRAZODONE HCL [Concomitant]
     Dosage: 150 MG, QD
     Route: 048
     Dates: start: 19990101, end: 20090101
  12. SEROQUEL [Concomitant]
     Dosage: 25 MG, TID
     Route: 048
  13. TRASYLOL [Suspect]
     Indication: AORTIC SURGERY
     Dosage: 5 X 10(5)/HR INFUSION
     Route: 042
     Dates: start: 20060331, end: 20060331
  14. RED BLOOD CELLS, CONCENTRATED [Concomitant]
     Dosage: 2 U, UNK
     Route: 042
     Dates: start: 20060331
  15. ZOCOR [Concomitant]
     Dosage: 40 MG, QD
     Route: 048
  16. GLUCOPHAGE [Concomitant]
     Dosage: 500 MG 1 ? EVERY MORNING, ? EVERY NIGHT
     Route: 048
  17. CEFUROXIME [Concomitant]
     Dosage: UNK
     Route: 042
     Dates: start: 20060331
  18. PLAVIX [Concomitant]
     Dosage: 75 MG, QD
     Route: 048
  19. INSULIN [INSULIN] [Concomitant]
     Dosage: UNK
     Route: 042
     Dates: start: 20060331

REACTIONS (10)
  - RENAL FAILURE [None]
  - EMOTIONAL DISTRESS [None]
  - UNEVALUABLE EVENT [None]
  - PAIN [None]
  - FEAR [None]
  - STRESS [None]
  - BLADDER DISORDER [None]
  - ANXIETY [None]
  - RENAL IMPAIRMENT [None]
  - RENAL INJURY [None]
